FAERS Safety Report 11932494 (Version 1)
Quarter: 2016Q1

REPORT INFORMATION
  Report Type: Spontaneous
  Country: US (occurrence: US)
  Receive Date: 20160120
  Receipt Date: 20160120
  Transmission Date: 20160526
  Serious: No
  Sender: FDA-Public Use
  Company Number: US-BAYER-2016-011289

PATIENT
  Age: 73 Year
  Sex: Male
  Weight: 83.45 kg

DRUGS (4)
  1. LISINOPRIL. [Concomitant]
     Active Substance: LISINOPRIL
     Dosage: UNK
  2. COREG [Concomitant]
     Active Substance: CARVEDILOL
     Dosage: UNK
  3. CLARITIN-D 24 HOUR [Suspect]
     Active Substance: LORATADINE\PSEUDOEPHEDRINE SULFATE
     Indication: UPPER-AIRWAY COUGH SYNDROME
     Dosage: 1 DF, PRN
     Route: 048
  4. CLARITIN-D 24 HOUR [Suspect]
     Active Substance: LORATADINE\PSEUDOEPHEDRINE SULFATE
     Indication: COUGH

REACTIONS (2)
  - Expired product administered [Unknown]
  - Product use issue [Unknown]

NARRATIVE: CASE EVENT DATE: 20160118
